FAERS Safety Report 14667122 (Version 1)
Quarter: 2018Q1

REPORT INFORMATION
  Report Type: Spontaneous
  Country: FR (occurrence: FR)
  Receive Date: 20180322
  Receipt Date: 20180322
  Transmission Date: 20180509
  Serious: Yes (Other)
  Sender: FDA-Public Use
  Company Number: FR-MERCK KGAA-2044274

PATIENT
  Age: 62 Year
  Sex: Female

DRUGS (1)
  1. NOVOTHYROX [Suspect]
     Active Substance: LEVOTHYROXINE SODIUM
     Indication: PRODUCT USED FOR UNKNOWN INDICATION

REACTIONS (16)
  - Fatigue [None]
  - Malaise [None]
  - Apathy [None]
  - Hot flush [None]
  - Middle insomnia [None]
  - Mental fatigue [None]
  - Ecchymosis [None]
  - Muscle spasms [None]
  - Dizziness [None]
  - Fall [None]
  - Loss of personal independence in daily activities [None]
  - Back pain [None]
  - Mood swings [None]
  - Major depression [None]
  - Irritability [None]
  - Palpitations [None]

NARRATIVE: CASE EVENT DATE: 201710
